FAERS Safety Report 5513533-1 (Version None)
Quarter: 2007Q4

REPORT INFORMATION
  Report Type: 
  Country: None (occurrence: None)
  Receive Date: 20071108
  Receipt Date: 20071029
  Transmission Date: 20080405
  Serious: Yes (Disabling)
  Sender: FDA-Public Use
  Company Number: OSCN-NO-0604S-0098

PATIENT
  Age: 51 Year
  Sex: Male

DRUGS (1)
  1. OMNISCAN [Suspect]
     Indication: COMPLICATIONS OF TRANSPLANTED KIDNEY
     Dosage: 34 ML, SINGLE DOSE, I.V.
     Route: 042
     Dates: start: 20050411, end: 20050411

REACTIONS (5)
  - GAIT DISTURBANCE [None]
  - NEPHROGENIC SYSTEMIC FIBROSIS [None]
  - NERVOUS SYSTEM DISORDER [None]
  - PENILE ULCERATION [None]
  - REMOVAL OF RENAL TRANSPLANT [None]
